FAERS Safety Report 4520437-X (Version None)
Quarter: 2004Q4

REPORT INFORMATION
  Report Type: 
  Country: None (occurrence: None)
  Receive Date: 20041206
  Receipt Date: 20041119
  Transmission Date: 20050328
  Serious: Yes (Other)
  Sender: FDA-Public Use
  Company Number: 2004-UK-01227UK

PATIENT
  Age: 92 Year
  Sex: Male

DRUGS (7)
  1. DIPYRIDAMOLE [Suspect]
     Dosage: 400 MG (, TWICE DAILY) PO
     Route: 048
     Dates: start: 20010326, end: 20040220
  2. ASPIRIN [Suspect]
     Dosage: 75 MG (, ONCE DAILY) PO
     Route: 048
     Dates: start: 20010508, end: 20040220
  3. SERTRALINE (SERTRALINE) (NR) [Suspect]
     Dosage: 100 MG (, ONCE DAILY) PO
     Route: 048
     Dates: start: 20020815
  4. MEBEVERINE (MEBEVERINE) (NR) [Concomitant]
  5. PARACETAMOL (PARACETAMOL) (NR) [Concomitant]
  6. SIMPLE LINCTUS (SIMPLE LINCTUS) (NR) [Concomitant]
  7. PROCHLORPERAZINE (PROCHLORPERAZINE) (NR) [Concomitant]

REACTIONS (3)
  - DYSPEPSIA [None]
  - HAEMATEMESIS [None]
  - OESOPHAGITIS [None]
